FAERS Safety Report 17119462 (Version 3)
Quarter: 2020Q1

REPORT INFORMATION
  Report Type: Spontaneous
  Country: US (occurrence: US)
  Receive Date: 20191206
  Receipt Date: 20200120
  Transmission Date: 20200409
  Serious: No
  Sender: FDA-Public Use
  Company Number: US-009507513-1912USA001297

PATIENT
  Sex: Male

DRUGS (1)
  1. NEXPLANON [Suspect]
     Active Substance: ETONOGESTREL
     Dosage: UNK

REACTIONS (4)
  - Injury associated with device [Unknown]
  - Occupational exposure to product [Unknown]
  - Skin haemorrhage [Unknown]
  - Product quality issue [Unknown]
